FAERS Safety Report 4626415-4 (Version None)
Quarter: 2005Q1

REPORT INFORMATION
  Report Type: 
  Country: None (occurrence: None)
  Receive Date: 20050330
  Receipt Date: 20050318
  Transmission Date: 20050727
  Serious: Yes (Death, Hospitalization)
  Sender: FDA-Public Use
  Company Number: 2005-00548

PATIENT
  Age: 69 Year
  Sex: Female

DRUGS (2)
  1. VELCADE [Suspect]
     Indication: MULTIPLE MYELOMA
     Dosage: SEE IMAGE
     Route: 042
     Dates: start: 20040521, end: 20040719
  2. DEXAMETHASONE [Suspect]
     Indication: MULTIPLE SCLEROSIS
     Dosage: 20.00 MG, ORAL
     Route: 048
     Dates: start: 20040521, end: 20040729

REACTIONS (7)
  - BACTERIAL SEPSIS [None]
  - BLOOD LACTATE DEHYDROGENASE INCREASED [None]
  - BLOOD POTASSIUM DECREASED [None]
  - HAEMODYNAMIC INSTABILITY [None]
  - MULTI-ORGAN FAILURE [None]
  - PNEUMONIA [None]
  - RESPIRATORY FAILURE [None]
